FAERS Safety Report 5638715-X (Version None)
Quarter: 2008Q1

REPORT INFORMATION
  Report Type: 
  Country: None (occurrence: None)
  Receive Date: 20080226
  Receipt Date: 20071213
  Transmission Date: 20080703
  Serious: No
  Sender: FDA-Public Use
  Company Number: A0699344A

PATIENT
  Sex: Female

DRUGS (3)
  1. IMITREX [Suspect]
     Indication: DRUG USE FOR UNKNOWN INDICATION
     Dosage: 100MG AS REQUIRED
     Route: 048
  2. LO/OVRAL [Concomitant]
  3. MAXALT [Concomitant]

REACTIONS (4)
  - CHEST DISCOMFORT [None]
  - HOT FLUSH [None]
  - HYPERHIDROSIS [None]
  - MUSCLE TIGHTNESS [None]
